FAERS Safety Report 9033172 (Version 2)
Quarter: 2013Q1

REPORT INFORMATION
  Report Type: Spontaneous
  Country: IT (occurrence: IT)
  Receive Date: 20130128
  Receipt Date: 20130214
  Transmission Date: 20140127
  Serious: Yes (Hospitalization)
  Sender: FDA-Public Use
  Company Number: IT-ROCHE-1182911

PATIENT
  Age: 68 Year
  Sex: 0
  Weight: 115 kg

DRUGS (12)
  1. TORADOL [Suspect]
     Indication: RENAL COLIC
     Route: 048
     Dates: start: 20121224, end: 20121227
  2. CARDIOASPIRIN [Suspect]
     Indication: PROPHYLAXIS
     Dosage: 1 TABLET
     Route: 048
     Dates: start: 19960101, end: 20121230
  3. COUMADIN [Suspect]
     Indication: PROPHYLAXIS
     Route: 048
     Dates: start: 20120101, end: 20121230
  4. BISOPROLOL [Concomitant]
     Dosage: 1  TABLET
     Route: 048
  5. RAMIPRIL [Concomitant]
     Dosage: 1 TABLET
     Route: 048
  6. DOXAZOSIN [Concomitant]
     Dosage: 1 TABLET
     Route: 048
  7. MICARDIS [Concomitant]
     Dosage: 1 TABLET
     Route: 048
  8. LANTUS [Concomitant]
     Indication: DIABETES MELLITUS
     Dosage: 100 MG/ML
     Route: 058
  9. EUTIROX [Concomitant]
     Dosage: 1 TABLET
     Route: 048
  10. LASIX [Concomitant]
     Route: 048
  11. ALLOPURINOL [Concomitant]
     Route: 048
  12. TORVAST [Concomitant]
     Dosage: 1 TABLET
     Route: 048

REACTIONS (4)
  - Anaemia [Unknown]
  - International normalised ratio abnormal [Unknown]
  - Renal haematoma [Unknown]
  - Gastric ulcer haemorrhage [Unknown]
